FAERS Safety Report 12802042 (Version 1)
Quarter: 2016Q4

REPORT INFORMATION
  Report Type: Spontaneous
  Country: US (occurrence: US)
  Receive Date: 20161003
  Receipt Date: 20161003
  Transmission Date: 20170207
  Serious: No
  Sender: FDA-Public Use
  Company Number: US-JAZZ-2016-US-012122

PATIENT
  Sex: Female

DRUGS (31)
  1. PHOS-NAK [Concomitant]
     Active Substance: POTASSIUM PHOSPHATE, MONOBASIC\SODIUM PHOSPHATE, DIBASIC, ANHYDROUS\SODIUM PHOSPHATE, MONOBASIC, MONOHYDRATE
  2. CLONAZEPAM. [Concomitant]
     Active Substance: CLONAZEPAM
  3. L LYSINE [Concomitant]
  4. NIACIN FLUSH FREE [Concomitant]
  5. ROZEREM [Concomitant]
     Active Substance: RAMELTEON
  6. SUPER BIOTIN [Concomitant]
  7. XYREM [Suspect]
     Active Substance: SODIUM OXYBATE
     Dosage: 4.5 G, BID
     Route: 048
     Dates: start: 201510
  8. SONATA [Concomitant]
     Active Substance: ZALEPLON
  9. TRAZODONE HYDROCHLORIDE. [Concomitant]
     Active Substance: TRAZODONE HYDROCHLORIDE
  10. UBIQUINOL [Concomitant]
     Active Substance: UBIQUINOL
  11. VIVELLE-DOT [Concomitant]
     Active Substance: ESTRADIOL
  12. PROGESTERONE. [Concomitant]
     Active Substance: PROGESTERONE
  13. EYE SUPPORT [Concomitant]
  14. LYRICA [Concomitant]
     Active Substance: PREGABALIN
  15. METFORMIN HCL [Concomitant]
     Active Substance: METFORMIN HYDROCHLORIDE
  16. CEREFOLIN NAC [Concomitant]
  17. PREGNENOLONA DHEA [Concomitant]
  18. VITAMIN D3 [Concomitant]
     Active Substance: CHOLECALCIFEROL
  19. ASTAXANTHIN [Concomitant]
  20. PRAMIPEXOLE DIHCL [Concomitant]
     Active Substance: PRAMIPEXOLE DIHYDROCHLORIDE
  21. PROBIOTIC [Concomitant]
     Active Substance: PROBIOTICS NOS
  22. POTASSIUM CL [Concomitant]
     Active Substance: POTASSIUM CHLORIDE
  23. OLIVE LEAF EXTRACT [Concomitant]
  24. CYCLOBENZAPRINE [Concomitant]
     Active Substance: CYCLOBENZAPRINE
  25. PREGNENOLONE [Concomitant]
     Active Substance: PREGNENOLONE
  26. TERCONAZOLE. [Concomitant]
     Active Substance: TERCONAZOLE
  27. LEVOTHYROXINE SODIUM. [Concomitant]
     Active Substance: LEVOTHYROXINE SODIUM
  28. XYREM [Suspect]
     Active Substance: SODIUM OXYBATE
     Indication: NARCOLEPSY
     Dosage: 3.25 G, BID
     Route: 048
     Dates: start: 201403, end: 201406
  29. XYREM [Suspect]
     Active Substance: SODIUM OXYBATE
     Indication: CATAPLEXY
     Dosage: DOSE ADJUSTMENTS
     Route: 048
     Dates: start: 201406, end: 201510
  30. DOXEPIN [Concomitant]
     Active Substance: DOXEPIN
  31. LUNESTA [Concomitant]
     Active Substance: ESZOPICLONE

REACTIONS (1)
  - Pain [Not Recovered/Not Resolved]
